FAERS Safety Report 7811169-0 (Version None)
Quarter: 2011Q4

REPORT INFORMATION
  Report Type: 
  Country: None (occurrence: None)
  Receive Date: 20111013
  Receipt Date: 20111011
  Transmission Date: 20120403
  Serious: Yes (Other)
  Sender: FDA-Public Use
  Company Number: PHHY2011IT89884

PATIENT
  Sex: Male

DRUGS (6)
  1. DOXORUBICIN HCL [Concomitant]
     Indication: MULTIPLE MYELOMA
     Dosage: 15 MG
     Route: 042
  2. DEXAMETHASONE [Concomitant]
     Dosage: 40 MG
  3. ZOMETA [Suspect]
     Indication: MULTIPLE MYELOMA
     Dosage: 4 MG, QMO
     Route: 042
     Dates: start: 20090414, end: 20110321
  4. VELCADE [Concomitant]
     Indication: MULTIPLE MYELOMA
     Dosage: 2 MG
     Route: 042
  5. THALIDOMIDE [Concomitant]
     Dosage: UNK
  6. VINCRISTINE [Concomitant]
     Indication: MULTIPLE MYELOMA
     Dosage: 0.4 MG
     Route: 042
     Dates: start: 20090125, end: 20090508

REACTIONS (3)
  - OSTEONECROSIS OF JAW [None]
  - ORAL INFECTION [None]
  - PAIN IN JAW [None]
